FAERS Safety Report 4776933-3 (Version None)
Quarter: 2005Q3

REPORT INFORMATION
  Report Type: 
  Country: None (occurrence: None)
  Receive Date: 20050914
  Receipt Date: 20040726
  Transmission Date: 20060218
  Serious: Yes (Hospitalization)
  Sender: FDA-Public Use
  Company Number: 163-20785-04070620

PATIENT
  Age: 68 Year
  Sex: Male

DRUGS (10)
  1. THALOMID [Suspect]
     Indication: IDIOPATHIC PULMONARY FIBROSIS
     Dosage: 300 MG, DAILY, ORAL
     Route: 048
     Dates: start: 20040626, end: 20040725
  2. DIOVAN [Concomitant]
  3. VIOXX [Concomitant]
  4. ZOLOFT [Concomitant]
  5. PROSCAR [Concomitant]
  6. PREDNISONE [Concomitant]
  7. NEXIUM (ESOMAPRAZOLE) [Concomitant]
  8. ECOTRIN (ACETYLSALICYLIC ACID) [Concomitant]
  9. OSCAL (CALCIUM CARBONATE) [Concomitant]
  10. LIPITOR [Concomitant]

REACTIONS (1)
  - CEREBROVASCULAR ACCIDENT [None]
